FAERS Safety Report 5258849-1 (Version None)
Quarter: 2007Q1

REPORT INFORMATION
  Report Type: 
  Country: None (occurrence: None)
  Receive Date: 20070308
  Receipt Date: 20070305
  Transmission Date: 20070707
  Serious: Yes (Disabling)
  Sender: FDA-Public Use
  Company Number: JP-JPN-A200700851

PATIENT
  Age: 56 Year
  Sex: Male
  Weight: 60 kg

DRUGS (23)
  1. ALKERAN [Suspect]
     Indication: STEM CELL TRANSPLANT
     Route: 042
     Dates: start: 20061205, end: 20061206
  2. GRAN [Concomitant]
     Dates: start: 20061213, end: 20061218
  3. VANCOMYCIN HYDROCHLORIDE [Concomitant]
     Route: 048
     Dates: start: 20061124, end: 20061204
  4. POLYMYXIN B SULFATE [Concomitant]
     Route: 048
     Dates: start: 20061124, end: 20061204
  5. ITRACONAZOLE [Concomitant]
     Route: 048
     Dates: start: 20060714, end: 20070116
  6. CARBENIN [Concomitant]
     Route: 042
     Dates: start: 20061204, end: 20061211
  7. MEROPEN [Concomitant]
     Route: 042
     Dates: start: 20061212, end: 20061215
  8. ISEPAMICIN [Concomitant]
     Dates: start: 20061212, end: 20061215
  9. PAZUCROSS [Concomitant]
     Route: 042
     Dates: start: 20061215, end: 20061225
  10. TARGOCID [Concomitant]
     Route: 042
     Dates: start: 20061215, end: 20061225
  11. TARGOCID [Concomitant]
     Route: 042
     Dates: start: 20070112, end: 20070115
  12. MODACIN [Concomitant]
     Route: 042
     Dates: start: 20070105, end: 20070109
  13. MINOCYCLINE HCL [Concomitant]
     Route: 042
     Dates: start: 20070115, end: 20070118
  14. PENTCILLIN [Concomitant]
     Dates: start: 20070101, end: 20070118
  15. FUNGUARD [Concomitant]
     Route: 042
     Dates: start: 20070117, end: 20070118
  16. PREDONINE [Concomitant]
     Dates: start: 20070118, end: 20070119
  17. SOLU-MEDROL [Concomitant]
     Route: 042
     Dates: start: 20070118, end: 20070118
  18. PARIET [Concomitant]
     Route: 048
     Dates: start: 20051201, end: 20070118
  19. URSO [Concomitant]
     Route: 048
     Dates: start: 20061124, end: 20070118
  20. BAKTAR [Concomitant]
     Dosage: 4 PER DAY
     Route: 048
     Dates: start: 20051201, end: 20070116
  21. VENOGLOBULIN [Concomitant]
     Dosage: 5G PER DAY
     Route: 042
     Dates: start: 20061124, end: 20061130
  22. VENOGLOBULIN [Concomitant]
     Dosage: 5G PER DAY
     Route: 042
     Dates: start: 20061208, end: 20061209
  23. VENOGLOBULIN [Concomitant]
     Dosage: 5G PER DAY
     Route: 042
     Dates: start: 20061222, end: 20061223

REACTIONS (1)
  - STOMATITIS [None]
